FAERS Safety Report 8073148-0 (Version None)
Quarter: 2012Q1

REPORT INFORMATION
  Report Type: 
  Country: None (occurrence: None)
  Receive Date: 20120126
  Receipt Date: 20120116
  Transmission Date: 20120608
  Serious: Yes (Hospitalization)
  Sender: FDA-Public Use
  Company Number: US-JNJFOC-20120107638

PATIENT
  Age: 44 Year
  Sex: Male

DRUGS (6)
  1. MOTRIN IB [Suspect]
     Route: 048
  2. NATURAL SUPPLEMENTS [Concomitant]
     Indication: INFLAMMATORY BOWEL DISEASE
     Route: 065
     Dates: start: 20111221
  3. PROPECIA [Concomitant]
     Indication: PRODUCT USED FOR UNKNOWN INDICATION
     Route: 065
  4. MOTRIN IB [Suspect]
     Indication: INFLAMMATORY BOWEL DISEASE
     Route: 048
  5. RESTORIL [Concomitant]
     Indication: PRODUCT USED FOR UNKNOWN INDICATION
     Route: 065
  6. LIBRIUM [Concomitant]
     Indication: PRODUCT USED FOR UNKNOWN INDICATION
     Route: 065

REACTIONS (2)
  - OFF LABEL USE [None]
  - ULCER HAEMORRHAGE [None]
